FAERS Safety Report 24237065 (Version 1)
Quarter: 2024Q3

REPORT INFORMATION
  Report Type: Spontaneous
  Country: CA (occurrence: CA)
  Receive Date: 20240822
  Receipt Date: 20240822
  Transmission Date: 20241017
  Serious: Yes (Other)
  Sender: RANBAXY
  Company Number: CA-SUN PHARMACEUTICAL INDUSTRIES LTD-2024R1-463688

PATIENT
  Age: 52 Year
  Sex: Female
  Weight: 92.1 kg

DRUGS (1)
  1. DULOXETINE [Suspect]
     Active Substance: DULOXETINE
     Indication: Neuropathy peripheral
     Dosage: 30 MILLIGRAM, DAILY
     Route: 065

REACTIONS (2)
  - Therapeutic response decreased [Unknown]
  - Hyperhidrosis [Unknown]
